FAERS Safety Report 4766025-1 (Version None)
Quarter: 2005Q3

REPORT INFORMATION
  Report Type: 
  Country: None (occurrence: None)
  Receive Date: 20050912
  Receipt Date: 20050725
  Transmission Date: 20060218
  Serious: Yes (Hospitalization)
  Sender: FDA-Public Use
  Company Number: J200502422

PATIENT
  Age: 84 Year
  Sex: Male

DRUGS (3)
  1. SAWACILLIN [Suspect]
     Indication: GASTRIC ULCER
     Dosage: 750MG TWICE PER DAY
     Route: 048
     Dates: start: 20050704, end: 20050710
  2. BIAXIN [Suspect]
     Indication: GASTRIC ULCER
     Dosage: 200MG TWICE PER DAY
     Route: 048
     Dates: start: 20050704, end: 20050710
  3. OMEPRAZOLE [Concomitant]
     Indication: GASTRIC ULCER
     Route: 048
     Dates: start: 20050621, end: 20050710

REACTIONS (3)
  - GENERALISED ERYTHEMA [None]
  - PRURITUS [None]
  - URTICARIA [None]
